FAERS Safety Report 4553762-7 (Version None)
Quarter: 2004Q4

REPORT INFORMATION
  Report Type: 
  Country: None (occurrence: None)
  Receive Date: 20041227
  Receipt Date: 20041104
  Transmission Date: 20050328
  Serious: No
  Sender: FDA-Public Use
  Company Number: 04P-163-0279803-00

PATIENT
  Age: 30 Year
  Sex: Female
  Weight: 60.782 kg

DRUGS (5)
  1. HUMIRA [Suspect]
     Indication: RHEUMATOID ARTHRITIS
     Dosage: 40 MG, 1 IN 2 WK, SUBCUTANEOUS
     Route: 058
     Dates: start: 20041103
  2. LEFLUNOMIDE [Concomitant]
  3. CELECOXIB [Concomitant]
  4. LEVOTHYROXINE SODIUM [Concomitant]
  5. PAROXETINE HYDROCHLORIDE [Concomitant]

REACTIONS (3)
  - CLUMSINESS [None]
  - FATIGUE [None]
  - INJECTION SITE BURNING [None]
